FAERS Safety Report 7013472-3 (Version None)
Quarter: 2010Q3

REPORT INFORMATION
  Report Type: 
  Country: None (occurrence: None)
  Receive Date: 20100924
  Receipt Date: 20100917
  Transmission Date: 20110219
  Serious: Yes (Other)
  Sender: FDA-Public Use
  Company Number: US-PFIZER INC-2010118540

PATIENT
  Sex: Male

DRUGS (1)
  1. CHANTIX [Suspect]
     Dosage: UNK
     Dates: start: 20100101, end: 20100916

REACTIONS (5)
  - ANGER [None]
  - FATIGUE [None]
  - IRRITABILITY [None]
  - MOOD SWINGS [None]
  - NAUSEA [None]
